FAERS Safety Report 9931517 (Version 1)
Quarter: 2014Q1

REPORT INFORMATION
  Report Type: Spontaneous
  Country: ES (occurrence: None)
  Receive Date: 20140224
  Receipt Date: 20140224
  Transmission Date: 20141002
  Serious: Yes (Other)
  Sender: FDA-Public Use
  Company Number: 2187621

PATIENT
  Sex: Female

DRUGS (2)
  1. DOCETAXEL [Suspect]
     Indication: PRODUCT USED FOR UNKNOWN INDICATION
     Dosage: FORMULATION: 80 MG, UNKNOWN, INTRAVENOUS
     Route: 041
  2. (CYCLOPHOSPHAMIDE) [Concomitant]

REACTIONS (1)
  - Infusion site pain [None]
